FAERS Safety Report 6584827-6 (Version None)
Quarter: 2010Q1

REPORT INFORMATION
  Report Type: 
  Country: None (occurrence: None)
  Receive Date: 20100204
  Receipt Date: 20100122
  Transmission Date: 20100710
  Serious: Yes (Other)
  Sender: FDA-Public Use
  Company Number: US-1180622

PATIENT
  Age: 70 Year
  Sex: Female

DRUGS (6)
  1. BSS [Suspect]
     Dosage: 500 ML INTRAOCULAR, 15 ML INTRAOCULAR
     Route: 031
     Dates: start: 20100121, end: 20100121
  2. BSS [Suspect]
     Dosage: 500 ML INTRAOCULAR, 15 ML INTRAOCULAR
     Route: 031
     Dates: start: 20100121, end: 20100121
  3. BETADINE [Suspect]
     Dosage: OPHTHALMIC
     Route: 046
     Dates: start: 20100121, end: 20100121
  4. EPINEPHRINE [Concomitant]
  5. VISCOAT [Concomitant]
  6. PROVIC [Concomitant]

REACTIONS (2)
  - POST PROCEDURAL COMPLICATION [None]
  - TOXIC ANTERIOR SEGMENT SYNDROME [None]
